FAERS Safety Report 6691949-8 (Version None)
Quarter: 2010Q2

REPORT INFORMATION
  Report Type: 
  Country: None (occurrence: None)
  Receive Date: 20100422
  Receipt Date: 20090513
  Transmission Date: 20101027
  Serious: No
  Sender: FDA-Public Use
  Company Number: US-ASTRAZENECA-2009UW12456

PATIENT
  Age: 90 Year
  Sex: Female
  Weight: 49.9 kg

DRUGS (4)
  1. METOPROLOL SUCCINATE [Suspect]
     Indication: CARDIAC PACEMAKER INSERTION
     Route: 048
     Dates: start: 20081201, end: 20090511
  2. METOPROLOL SUCCINATE [Suspect]
     Indication: CARDIAC FLUTTER
     Route: 048
     Dates: start: 20081201, end: 20090511
  3. LISINOPRIL [Concomitant]
  4. NIFEDICAL [Concomitant]

REACTIONS (4)
  - AGITATION [None]
  - HALLUCINATION, AUDITORY [None]
  - INSOMNIA [None]
  - PSYCHOTIC BEHAVIOUR [None]
